FAERS Safety Report 26043031 (Version 2)
Quarter: 2025Q4

REPORT INFORMATION
  Report Type: Spontaneous
  Country: US (occurrence: US)
  Receive Date: 20251113
  Receipt Date: 20251222
  Transmission Date: 20260118
  Serious: Yes (Other)
  Sender: ANI
  Company Number: US-ANIPHARMA-2025-US-047144

PATIENT
  Age: 68 Year
  Sex: Female

DRUGS (41)
  1. CORTICOTROPIN [Suspect]
     Active Substance: CORTICOTROPIN
     Indication: Sarcoidosis
     Dosage: (80 UNITS) 1ML SUBQ 3 TIMES WEEKLY, TWICE WEEKLY
     Route: 058
     Dates: start: 20240823
  2. NEXIUM [Concomitant]
     Active Substance: ESOMEPRAZOLE MAGNESIUM
  3. BACTRIM DS [Concomitant]
     Active Substance: SULFAMETHOXAZOLE\TRIMETHOPRIM
  4. PHENAZOPYRIDINE HCL [Concomitant]
     Active Substance: PHENAZOPYRIDINE HYDROCHLORIDE
  5. PREDNISONE [Concomitant]
     Active Substance: PREDNISONE
  6. TIZANIDINE [Concomitant]
     Active Substance: TIZANIDINE
  7. TRELEGY ELLIPTA [Concomitant]
     Active Substance: FLUTICASONE FUROATE\UMECLIDINIUM BROMIDE\VILANTEROL TRIFENATATE
  8. VOLTAREN [Concomitant]
     Active Substance: DICLOFENAC SODIUM
  9. TRIAMCINOLONE ACETONIDE D [Concomitant]
  10. ALPRAZOLAM [Concomitant]
     Active Substance: ALPRAZOLAM
  11. HYQVIA [Concomitant]
     Active Substance: HUMAN IMMUNOGLOBULIN G\HYALURONIDASE (HUMAN RECOMBINANT)
  12. AMBIEN [Concomitant]
     Active Substance: ZOLPIDEM TARTRATE
  13. LEUCOVORIN [Concomitant]
     Active Substance: LEUCOVORIN\LEUCOVORIN CALCIUM
  14. LEVALBUTEROL [Concomitant]
     Active Substance: LEVALBUTEROL
  15. LOPERAMIDE [Concomitant]
     Active Substance: LOPERAMIDE
  16. EQ LORATIDINE [Concomitant]
  17. FENTANYL [Concomitant]
     Active Substance: FENTANYL
  18. ESTER-C [Concomitant]
  19. FAMCICLOVIR [Concomitant]
     Active Substance: FAMCICLOVIR
  20. DOCUSATE [Concomitant]
     Active Substance: DOCUSATE
  21. DULOXETINE [Concomitant]
     Active Substance: DULOXETINE
  22. ERYTHROMYCIN [Concomitant]
     Active Substance: ERYTHROMYCIN
  23. FIORICET [Concomitant]
     Active Substance: ACETAMINOPHEN\BUTALBITAL\CAFFEINE
  24. DILTIAZEM [Concomitant]
     Active Substance: DILTIAZEM
  25. OLMESARTAN [Concomitant]
     Active Substance: OLMESARTAN
  26. ONDANSETRON [Concomitant]
     Active Substance: ONDANSETRON
  27. MIRALAX [Concomitant]
     Active Substance: POLYETHYLENE GLYCOL 3350
  28. CLOBATESOL [Concomitant]
  29. LORATADINE [Concomitant]
     Active Substance: LORATADINE
  30. HYDROCORTOSONE [Concomitant]
  31. HYDROMORPHO [Concomitant]
  32. MAGNESIUM [Concomitant]
     Active Substance: MAGNESIUM
  33. METHOTREXATE [Concomitant]
     Active Substance: METHOTREXATE
  34. BENZONATATE [Concomitant]
     Active Substance: BENZONATATE
  35. MOMETASONE [Concomitant]
     Active Substance: MOMETASONE
  36. NYSTATIN [Concomitant]
     Active Substance: NYSTATIN
  37. PROLIA [Concomitant]
     Active Substance: DENOSUMAB
  38. CYCLOSPORINE [Concomitant]
     Active Substance: CYCLOSPORINE
  39. PROBIOTICS NOS [Concomitant]
     Active Substance: PROBIOTICS NOS
  40. ADDERALL XR [Concomitant]
     Active Substance: AMPHETAMINE ASPARTATE\AMPHETAMINE SULFATE\DEXTROAMPHETAMINE SACCHARATE\DEXTROAMPHETAMINE SULFATE
  41. DICYCLOMINE HYDROCHLORIDE [Concomitant]
     Active Substance: DICYCLOMINE HYDROCHLORIDE

REACTIONS (2)
  - Herpes simplex [Unknown]
  - Blindness [Unknown]

NARRATIVE: CASE EVENT DATE: 20251005
